FAERS Safety Report 16775659 (Version 3)
Quarter: 2019Q4

REPORT INFORMATION
  Report Type: Spontaneous
  Country: JP (occurrence: JP)
  Receive Date: 20190905
  Receipt Date: 20191204
  Transmission Date: 20200122
  Serious: Yes (Hospitalization, Other)
  Sender: FDA-Public Use
  Company Number: JP-BRISTOL-MYERS SQUIBB COMPANY-BMS-2019-086161

PATIENT
  Age: 72 Year
  Sex: Female
  Weight: 35 kg

DRUGS (4)
  1. TAKECAB [Concomitant]
     Active Substance: VONOPRAZAN FUMURATE
     Indication: DECREASED APPETITE
     Dosage: 10 MILLIGRAM, EVERYDAY
     Route: 048
     Dates: start: 20190605
  2. BAROS ANTIFOAMING [Concomitant]
     Active Substance: DIMETHICONE
     Indication: DECREASED APPETITE
     Dosage: 2 MILLILITER, Q8H
     Route: 048
     Dates: start: 20190807
  3. METOCLOPRAMIDE [METOCLOPRAMIDE HYDROCHLORIDE] [Concomitant]
     Active Substance: METOCLOPRAMIDE HYDROCHLORIDE
     Indication: DECREASED APPETITE
     Dosage: 15 MILLIGRAM, EVERYDAY
     Route: 048
     Dates: start: 20190626
  4. OPDIVO [Suspect]
     Active Substance: NIVOLUMAB
     Indication: GASTRIC CANCER RECURRENT
     Dosage: 240 MG, Q2W
     Route: 041
     Dates: start: 20190731, end: 20190814

REACTIONS (3)
  - Decreased appetite [Not Recovered/Not Resolved]
  - Ascites [Unknown]
  - Malignant neoplasm progression [Unknown]

NARRATIVE: CASE EVENT DATE: 20190826
